FAERS Safety Report 7119402-8 (Version None)
Quarter: 2010Q4

REPORT INFORMATION
  Report Type: 
  Country: None (occurrence: None)
  Receive Date: 20101123
  Receipt Date: 20101115
  Transmission Date: 20110411
  Serious: Yes (Disabling)
  Sender: FDA-Public Use
  Company Number: US-MERCK-1011USA01756

PATIENT
  Age: 58 Year
  Sex: Female
  Weight: 95 kg

DRUGS (1)
  1. ZETIA [Suspect]
     Indication: BLOOD CHOLESTEROL
     Route: 048
     Dates: start: 20080101, end: 20100101

REACTIONS (6)
  - HAIR GROWTH ABNORMAL [None]
  - LOSS OF CONTROL OF LEGS [None]
  - NAIL GROWTH ABNORMAL [None]
  - PAIN IN EXTREMITY [None]
  - PERIPHERAL COLDNESS [None]
  - WALKING DISABILITY [None]
